FAERS Safety Report 17419751 (Version 2)
Quarter: 2020Q1

REPORT INFORMATION
  Report Type: Spontaneous
  Country: US (occurrence: US)
  Receive Date: 20200214
  Receipt Date: 20200318
  Transmission Date: 20200409
  Serious: No
  Sender: FDA-Public Use
  Company Number: US-JNJFOC-20200217820

PATIENT
  Age: 61 Year
  Sex: Female
  Weight: 62.2 kg

DRUGS (1)
  1. RISPERDAL CONSTA [Suspect]
     Active Substance: RISPERIDONE
     Indication: SCHIZOPHRENIA
     Route: 030

REACTIONS (2)
  - Product dose omission [Unknown]
  - Product container issue [Unknown]

NARRATIVE: CASE EVENT DATE: 20200211
